FAERS Safety Report 5523059-7 (Version None)
Quarter: 2007Q4

REPORT INFORMATION
  Report Type: 
  Country: None (occurrence: None)
  Receive Date: 20071119
  Receipt Date: 20071109
  Transmission Date: 20080405
  Serious: No
  Sender: FDA-Public Use
  Company Number: 163-21880-07070016

PATIENT
  Age: 45 Year
  Sex: Female

DRUGS (2)
  1. REVLIMID [Suspect]
     Indication: MULTIPLE MYELOMA
     Dosage: 25 MG, 1 IN 1 D, ORAL; 5-25 MG, DAILY, ORAL
     Route: 048
     Dates: start: 20060221, end: 20060701
  2. REVLIMID [Suspect]
     Indication: MULTIPLE MYELOMA
     Dosage: 25 MG, 1 IN 1 D, ORAL; 5-25 MG, DAILY, ORAL
     Route: 048
     Dates: start: 20060818, end: 20070618

REACTIONS (5)
  - ABDOMINAL PAIN UPPER [None]
  - DIARRHOEA [None]
  - DRY SKIN [None]
  - NERVE INJURY [None]
  - TRIGEMINAL NEURALGIA [None]
